FAERS Safety Report 4815342-5 (Version None)
Quarter: 2005Q4

REPORT INFORMATION
  Report Type: 
  Country: None (occurrence: None)
  Receive Date: 20051027
  Receipt Date: 20050712
  Transmission Date: 20060501
  Serious: Yes (Hospitalization, Other)
  Sender: FDA-Public Use
  Company Number: 2004220887US

PATIENT
  Age: 42 Year
  Sex: Male
  Weight: 112.9457 kg

DRUGS (11)
  1. CELEBREX [Suspect]
     Indication: NEUROPATHY
     Dosage: 400 MG (200 MG, 2 IN 1 D)
     Dates: start: 19991220
  2. CELEBREX [Suspect]
     Indication: OSTEOARTHRITIS
     Dosage: 400 MG (200 MG, 2 IN 1 D)
     Dates: start: 19991220
  3. CELEBREX [Suspect]
     Indication: PAIN
     Dosage: 400 MG (200 MG, 2 IN 1 D)
     Dates: start: 19991220
  4. EFFEXOR [Concomitant]
  5. DEPAKOTE [Concomitant]
  6. TEMAZEPAM [Concomitant]
  7. PLAVIX [Concomitant]
  8. PRAVACHOL [Concomitant]
  9. ALTACE [Concomitant]
  10. GLUCOVANCE [Concomitant]
  11. LORCET-HD [Concomitant]

REACTIONS (3)
  - CEREBROVASCULAR ACCIDENT [None]
  - CONVULSION [None]
  - TRANSIENT ISCHAEMIC ATTACK [None]
